FAERS Safety Report 6752741-9 (Version None)
Quarter: 2010Q2

REPORT INFORMATION
  Report Type: 
  Country: None (occurrence: None)
  Receive Date: 20100528
  Receipt Date: 20100517
  Transmission Date: 20101027
  Serious: Yes (Other)
  Sender: FDA-Public Use
  Company Number: WAES1005USA01256

PATIENT
  Age: 62 Year
  Sex: Male
  Weight: 99.7913 kg

DRUGS (9)
  1. VYTORIN [Suspect]
     Indication: ACUTE CORONARY SYNDROME
     Dosage: 1 TAB DAILY PO
     Route: 048
     Dates: start: 20080915
  2. PLACEBO (UNSPECIFIED) UNK [Suspect]
     Indication: ACUTE CORONARY SYNDROME
     Dosage: 1 TAB DAILY PO
     Route: 048
     Dates: start: 20080915
  3. TAB PLACEBO (UNSPECIFIED) UNK [Suspect]
     Indication: ACUTE CORONARY SYNDROME
     Dosage: 1 TAB DAILY PO
     Route: 048
     Dates: start: 20080915
  4. NITROSTAT [Concomitant]
  5. PLAVIX [Concomitant]
  6. ZANTAC [Concomitant]
  7. ASPIRIN [Concomitant]
  8. METFORMIN [Concomitant]
  9. TERAZOSIN HYDROCHLORIDE [Concomitant]

REACTIONS (4)
  - BLADDER TRANSITIONAL CELL CARCINOMA [None]
  - TRANSITIONAL CELL CARCINOMA [None]
  - URINARY TRACT DISORDER [None]
  - URINARY TRACT OBSTRUCTION [None]
